FAERS Safety Report 21300455 (Version 1)
Quarter: 2022Q3

REPORT INFORMATION
  Report Type: Spontaneous
  Country: IN (occurrence: IN)
  Receive Date: 20220907
  Receipt Date: 20220907
  Transmission Date: 20221027
  Serious: Yes (Hospitalization)
  Sender: FDA-Public Use
  Company Number: IN-NAARI PTE LIMITED-2022NP000049

PATIENT
  Age: 16 Year
  Sex: Female

DRUGS (1)
  1. NORETHINDRONE [Suspect]
     Active Substance: NORETHINDRONE
     Indication: Polycystic ovaries
     Dosage: 5 MILLIGRAM, UNKNOWN, NORETHINDRONE PILLS
     Route: 048

REACTIONS (2)
  - Cerebral venous sinus thrombosis [Recovered/Resolved]
  - Cerebral infarction [Recovered/Resolved]
